FAERS Safety Report 11983111 (Version 2)
Quarter: 2016Q1

REPORT INFORMATION
  Report Type: Spontaneous
  Country: US (occurrence: US)
  Receive Date: 20160201
  Receipt Date: 20160309
  Transmission Date: 20160526
  Serious: Yes (Other)
  Sender: FDA-Public Use
  Company Number: US-PFIZER INC-2016036506

PATIENT
  Sex: Female

DRUGS (1)
  1. TIKOSYN [Suspect]
     Active Substance: DOFETILIDE
     Indication: ATRIAL FIBRILLATION
     Dosage: 250 UG, 2X/DAY
     Dates: start: 201509

REACTIONS (5)
  - Gastrooesophageal reflux disease [Unknown]
  - Insomnia [Unknown]
  - Blood calcium increased [Unknown]
  - Cataract [Unknown]
  - Blood potassium increased [Unknown]
